FAERS Safety Report 20153169 (Version 2)
Quarter: 2021Q4

REPORT INFORMATION
  Report Type: Spontaneous
  Country: US (occurrence: US)
  Receive Date: 20211206
  Receipt Date: 20211217
  Transmission Date: 20220303
  Serious: No
  Sender: FDA-Public Use
  Company Number: US-MYLANLABS-2021M1066042

PATIENT
  Sex: Female

DRUGS (1)
  1. ESTRADIOL TRANSDERMAL SYSTEM [Suspect]
     Active Substance: ESTRADIOL
     Indication: Product used for unknown indication
     Dosage: 1 PATCH  WEEK, (QW)
     Route: 062
     Dates: start: 20210914, end: 20210922

REACTIONS (5)
  - Application site pain [Recovering/Resolving]
  - Application site warmth [Recovering/Resolving]
  - Application site scab [Recovering/Resolving]
  - Application site erythema [Recovering/Resolving]
  - Application site reaction [Recovering/Resolving]

NARRATIVE: CASE EVENT DATE: 20210919
